FAERS Safety Report 9128077 (Version 7)
Quarter: 2013Q3

REPORT INFORMATION
  Report Type: Report from Study
  Country: US (occurrence: US)
  Receive Date: 20130228
  Receipt Date: 20130712
  Transmission Date: 20140515
  Serious: Yes (Life-Threatening, Hospitalization, Other)
  Sender: FDA-Public Use
  Company Number: US-JNJFOC-20130212769

PATIENT
  Age: 44 Year
  Sex: Female
  Weight: 117.94 kg

DRUGS (4)
  1. REMICADE [Suspect]
     Indication: PSORIASIS
     Route: 042
     Dates: start: 200801, end: 200806
  2. USTEKINUMAB [Suspect]
     Indication: PSORIASIS
     Dosage: FIRST DOSE
     Route: 058
     Dates: start: 20121219
  3. USTEKINUMAB [Suspect]
     Indication: PSORIASIS
     Dosage: SECOND DOSE
     Route: 058
     Dates: start: 20130108
  4. ADALIMUMAB [Concomitant]
     Dates: start: 201102

REACTIONS (2)
  - Pulmonary embolism [Recovered/Resolved]
  - Tooth infection [Unknown]
